FAERS Safety Report 23329693 (Version 1)
Quarter: 2023Q4

REPORT INFORMATION
  Report Type: Report from Study
  Country: US (occurrence: US)
  Receive Date: 20231222
  Receipt Date: 20231222
  Transmission Date: 20240110
  Serious: No
  Sender: FDA-Public Use
  Company Number: US-ACADIA PHARMACEUTICALS INC.-ACA-2023-TRF-005579

PATIENT
  Sex: Female

DRUGS (1)
  1. DAYBUE [Suspect]
     Active Substance: TROFINETIDE
     Route: 065

REACTIONS (4)
  - Ill-defined disorder [Unknown]
  - Intermenstrual bleeding [Unknown]
  - Underdose [Unknown]
  - Diarrhoea [Unknown]
